FAERS Safety Report 18763901 (Version 1)
Quarter: 2021Q1

REPORT INFORMATION
  Report Type: Spontaneous
  Country: DE (occurrence: DE)
  Receive Date: 20210120
  Receipt Date: 20210120
  Transmission Date: 20210419
  Serious: Yes (Other)
  Sender: FDA-Public Use
  Company Number: DE-TEVA-2021-DE-1871134

PATIENT
  Age: 36 Year
  Sex: Male
  Weight: 95 kg

DRUGS (1)
  1. ESOMEPRAZOLE 40 MG [Suspect]
     Active Substance: ESOMEPRAZOLE
     Indication: DYSPEPSIA
     Dosage: 40MG
     Route: 048
     Dates: start: 20200901, end: 20210104

REACTIONS (2)
  - Loss of consciousness [Recovering/Resolving]
  - Syncope [Recovering/Resolving]

NARRATIVE: CASE EVENT DATE: 20201001
